FAERS Safety Report 8294758-1 (Version None)
Quarter: 2012Q2

REPORT INFORMATION
  Report Type: 
  Country: None (occurrence: None)
  Receive Date: 20120418
  Receipt Date: 20120411
  Transmission Date: 20120825
  Serious: Yes (Hospitalization, Other)
  Sender: FDA-Public Use
  Company Number: CH-CUBIST-2012S1000062

PATIENT
  Age: 75 Year
  Sex: Female

DRUGS (12)
  1. CUBICIN [Suspect]
     Indication: ENTEROCOCCAL INFECTION
     Route: 042
     Dates: start: 20111026, end: 20111108
  2. MORPHINE SULFATE [Concomitant]
     Indication: PRODUCT USED FOR UNKNOWN INDICATION
  3. CIPROFLOXACIN HYDROCHLORIDE [Concomitant]
     Indication: PRODUCT USED FOR UNKNOWN INDICATION
  4. ENALAPRIL MALEATE AND HYDROCHLOROTHIAZIDE [Concomitant]
     Indication: PRODUCT USED FOR UNKNOWN INDICATION
  5. CUBICIN [Suspect]
     Indication: DEVICE RELATED INFECTION
     Route: 042
     Dates: start: 20111026, end: 20111108
  6. VENLAFAXINE [Concomitant]
     Indication: PRODUCT USED FOR UNKNOWN INDICATION
  7. ACETAMINOPHEN [Concomitant]
     Indication: PRODUCT USED FOR UNKNOWN INDICATION
  8. METAMIZOLE SODIUM MONOHYDRATE [Concomitant]
     Indication: PRODUCT USED FOR UNKNOWN INDICATION
  9. MIANSERIN [Concomitant]
     Indication: PRODUCT USED FOR UNKNOWN INDICATION
  10. GLIMEPIRIDE [Concomitant]
     Indication: PRODUCT USED FOR UNKNOWN INDICATION
  11. METOPROLOL TARTRATE AND HYDROCHLOROTHIAZIDE [Concomitant]
     Indication: PRODUCT USED FOR UNKNOWN INDICATION
  12. AMOXICILLIN [Concomitant]
     Indication: ENTEROCOCCAL INFECTION

REACTIONS (8)
  - GRAFT INFECTION [None]
  - EOSINOPHILIC PNEUMONIA [None]
  - UROSEPSIS [None]
  - PRURITUS [None]
  - BLOOD CREATINE PHOSPHOKINASE INCREASED [None]
  - OBESITY [None]
  - RASH [None]
  - DRUG HYPERSENSITIVITY [None]
